FAERS Safety Report 19459441 (Version 1)
Quarter: 2021Q2

REPORT INFORMATION
  Report Type: Spontaneous
  Country: GB (occurrence: GB)
  Receive Date: 20210624
  Receipt Date: 20210624
  Transmission Date: 20210717
  Serious: Yes (Other)
  Sender: FDA-Public Use
  Company Number: GB-TAKEDA-2021TUS039076

PATIENT
  Age: 32 Year
  Sex: Female
  Weight: 115 kg

DRUGS (11)
  1. ADCAL?D3 [Concomitant]
     Active Substance: CALCIUM CARBONATE\CHOLECALCIFEROL
     Indication: ILL-DEFINED DISORDER
     Dosage: UNK
  2. METHOTREXATE. [Concomitant]
     Active Substance: METHOTREXATE
     Indication: ILL-DEFINED DISORDER
     Dosage: UNK
  3. PROCHLORPERAZIN [Concomitant]
     Active Substance: PROCHLORPERAZINE
     Indication: ILL-DEFINED DISORDER
     Dosage: UNK
  4. PANTOPRAZOLE [Concomitant]
     Active Substance: PANTOPRAZOLE
     Indication: ILL-DEFINED DISORDER
     Dosage: UNK
  5. GABAPENTIN. [Concomitant]
     Active Substance: GABAPENTIN
     Indication: ILL-DEFINED DISORDER
     Dosage: UNK
  6. ENTYVIO [Suspect]
     Active Substance: VEDOLIZUMAB
     Indication: CROHN^S DISEASE
     Dosage: UNK
     Route: 042
     Dates: start: 20210617, end: 20210617
  7. FOLIC ACID. [Concomitant]
     Active Substance: FOLIC ACID
     Indication: ILL-DEFINED DISORDER
     Dosage: UNK
  8. PARACETAMOL [Concomitant]
     Active Substance: ACETAMINOPHEN
     Indication: ILL-DEFINED DISORDER
     Dosage: UNK
  9. DESOGESTREL [Concomitant]
     Active Substance: DESOGESTREL
     Indication: ILL-DEFINED DISORDER
     Dosage: UNK
  10. MEBEVERINE [Concomitant]
     Active Substance: MEBEVERINE
     Indication: ILL-DEFINED DISORDER
     Dosage: UNK
  11. MIRTAZAPINE. [Concomitant]
     Active Substance: MIRTAZAPINE
     Indication: ILL-DEFINED DISORDER
     Dosage: UNK

REACTIONS (1)
  - Seizure [Recovered/Resolved]

NARRATIVE: CASE EVENT DATE: 20210617
